FAERS Safety Report 12207364 (Version 1)
Quarter: 2016Q1

REPORT INFORMATION
  Report Type: Spontaneous
  Country: IN (occurrence: IN)
  Receive Date: 20160324
  Receipt Date: 20160324
  Transmission Date: 20160526
  Serious: Yes (Hospitalization, Other)
  Sender: FDA-Public Use
  Company Number: IN-GLAXOSMITHKLINE-IN2016040592

PATIENT
  Age: 27 Year
  Sex: Female

DRUGS (6)
  1. DEXAMETHASONE. [Concomitant]
     Active Substance: DEXAMETHASONE
  2. CEFUROXIME. [Suspect]
     Active Substance: CEFUROXIME
     Indication: PRODUCT USED FOR UNKNOWN INDICATION
     Route: 042
  3. ATRACURIUM [Concomitant]
     Active Substance: ATRACURIUM
  4. PROPOFOL. [Concomitant]
     Active Substance: PROPOFOL
  5. MIDAZOLAM [Concomitant]
     Active Substance: MIDAZOLAM\MIDAZOLAM HYDROCHLORIDE
  6. ADRIAMYCIN [Concomitant]
     Active Substance: DOXORUBICIN HYDROCHLORIDE
     Indication: OSTEOSARCOMA

REACTIONS (2)
  - Stress cardiomyopathy [Recovering/Resolving]
  - Anaphylactic reaction [Recovering/Resolving]
